FAERS Safety Report 16887568 (Version 3)
Quarter: 2020Q1

REPORT INFORMATION
  Report Type: Spontaneous
  Country: US (occurrence: US)
  Receive Date: 20191005
  Receipt Date: 20200304
  Transmission Date: 20200409
  Serious: Yes (Other)
  Sender: FDA-Public Use
  Company Number: US-JNJFOC-20190933468

PATIENT
  Sex: Male
  Weight: 68.1 kg

DRUGS (2)
  1. BENADRYL [Suspect]
     Active Substance: DIPHENHYDRAMINE HYDROCHLORIDE
     Indication: INSOMNIA
     Dosage: 8 TO 10 TABLETS
     Route: 048
     Dates: start: 2017, end: 20200110
  2. METHADONE [Concomitant]
     Active Substance: METHADONE HYDROCHLORIDE
     Indication: DRUG DEPENDENCE
     Dosage: FOR 4 YEARS
     Route: 065

REACTIONS (2)
  - Drug abuse [Unknown]
  - Withdrawal syndrome [Unknown]
